FAERS Safety Report 6417032-4 (Version None)
Quarter: 2009Q4

REPORT INFORMATION
  Report Type: 
  Country: None (occurrence: None)
  Receive Date: 20091026
  Receipt Date: 20091020
  Transmission Date: 20100525
  Serious: Yes (Death, Hospitalization)
  Sender: FDA-Public Use
  Company Number: 2009SP027601

PATIENT
  Age: 49 Year
  Sex: Male

DRUGS (5)
  1. PEG-INTRON [Suspect]
     Indication: HEPATIC CIRRHOSIS
     Dosage: 120 MCG;QW;
     Dates: start: 20090403, end: 20090612
  2. PEG-INTRON [Suspect]
     Indication: HEPATITIS C
     Dosage: 120 MCG;QW;
     Dates: start: 20090403, end: 20090612
  3. REBETOL [Suspect]
     Indication: HEPATIC CIRRHOSIS
     Dosage: 1000 MG; QD;
     Dates: start: 20090403, end: 20090613
  4. REBETOL [Suspect]
     Indication: HEPATITIS C
     Dosage: 1000 MG; QD;
     Dates: start: 20090403, end: 20090613
  5. PARACETAMOL [Concomitant]

REACTIONS (10)
  - ACUTE PULMONARY OEDEMA [None]
  - ACUTE RESPIRATORY FAILURE [None]
  - ASCITES [None]
  - COAGULOPATHY [None]
  - DIARRHOEA [None]
  - HEPATIC ENCEPHALOPATHY [None]
  - HEPATITIS CHOLESTATIC [None]
  - HEPATOTOXICITY [None]
  - MULTI-ORGAN FAILURE [None]
  - PNEUMONIA [None]
